FAERS Safety Report 15150266 (Version 1)
Quarter: 2018Q3

REPORT INFORMATION
  Report Type: Spontaneous
  Country: DE (occurrence: DE)
  Receive Date: 20180716
  Receipt Date: 20180716
  Transmission Date: 20181010
  Serious: Yes (Other)
  Sender: FDA-Public Use
  Company Number: DE-US WORLDMEDS, LLC-STA_00017420

PATIENT
  Sex: Female
  Weight: 63 kg

DRUGS (16)
  1. ISICOM 100 [Concomitant]
     Indication: PARKINSON^S DISEASE
  2. TASMAR [Concomitant]
     Active Substance: TOLCAPONE
     Indication: PARKINSON^S DISEASE
  3. MADOPAR LT [Concomitant]
     Active Substance: BENSERAZIDE HYDROCHLORIDE\LEVODOPA
     Indication: PARKINSON^S DISEASE
  4. RAMIPRIL. [Concomitant]
     Active Substance: RAMIPRIL
     Indication: PRODUCT USED FOR UNKNOWN INDICATION
  5. MADOPAR DEPOT [Concomitant]
     Active Substance: BENSERAZIDE HYDROCHLORIDE\LEVODOPA
     Indication: PARKINSON^S DISEASE
  6. PROCORALAN 5MG [Concomitant]
     Indication: PRODUCT USED FOR UNKNOWN INDICATION
  7. APOMORPHINE HYDROCHLORIDE [Suspect]
     Active Substance: APOMORPHINE HYDROCHLORIDE
     Indication: PARKINSON^S DISEASE
     Route: 058
     Dates: start: 20140115
  8. ASS 100 [Concomitant]
     Active Substance: ASPIRIN
     Indication: PRODUCT USED FOR UNKNOWN INDICATION
  9. MAGNESIUM VERLA [Concomitant]
     Active Substance: MAGNESIUM
     Indication: PRODUCT USED FOR UNKNOWN INDICATION
  10. LEVOTHYROXINE. [Concomitant]
     Active Substance: LEVOTHYROXINE
     Indication: PRODUCT USED FOR UNKNOWN INDICATION
  11. FUROSEMID 40 [Concomitant]
     Indication: PRODUCT USED FOR UNKNOWN INDICATION
  12. VIGANTOLETTEN 1000IE [Concomitant]
     Indication: PRODUCT USED FOR UNKNOWN INDICATION
  13. OMEPRAZOLE. [Concomitant]
     Active Substance: OMEPRAZOLE
     Indication: PRODUCT USED FOR UNKNOWN INDICATION
  14. DOMPERIDON 10MG [Concomitant]
  15. NOVAMINSULFON 500MG [Concomitant]
     Indication: PRODUCT USED FOR UNKNOWN INDICATION
  16. NEURO?RATIOPHARM 100/100 [Concomitant]
     Indication: PRODUCT USED FOR UNKNOWN INDICATION

REACTIONS (5)
  - Injection site erythema [Recovered/Resolved]
  - Injection site necrosis [Recovered/Resolved]
  - Injection site haematoma [Recovered/Resolved]
  - Injection site nodule [Recovering/Resolving]
  - Injection site swelling [Recovering/Resolving]
